FAERS Safety Report 12893015 (Version 1)
Quarter: 2016Q4

REPORT INFORMATION
  Report Type: Spontaneous
  Country: US (occurrence: US)
  Receive Date: 20161028
  Receipt Date: 20161028
  Transmission Date: 20170207
  Serious: No
  Sender: FDA-Public Use
  Company Number: US-PFIZER INC-2016502882

PATIENT
  Age: 57 Year
  Sex: Female
  Weight: 87 kg

DRUGS (11)
  1. OXYCODONE [Concomitant]
     Active Substance: OXYCODONE
     Dosage: 10 MG, UNK
  2. XANAX [Concomitant]
     Active Substance: ALPRAZOLAM
     Indication: SLEEP DISORDER
  3. HYDROCODONE [Concomitant]
     Active Substance: HYDROCODONE
     Indication: PAIN
     Dosage: 7.5 MG, 2X/DAY
  4. LYRICA [Suspect]
     Active Substance: PREGABALIN
     Indication: NEURALGIA
     Dosage: 50 MG, 3X/DAY
     Dates: start: 20160805
  5. BENICAR [Concomitant]
     Active Substance: OLMESARTAN MEDOXOMIL
     Indication: HYPERTENSION
     Dosage: 20 MG, 1X/DAY
  6. OXYCODONE [Concomitant]
     Active Substance: OXYCODONE
     Indication: BACK PAIN
     Dosage: 5 MG, UNK, 2-3 5MG TABLETS A DAY. HALF EVERY FOUR HOURS
     Dates: start: 2011
  7. LYRICA [Suspect]
     Active Substance: PREGABALIN
     Dosage: 275 MG, DAILY
  8. XANAX [Concomitant]
     Active Substance: ALPRAZOLAM
     Indication: ANXIETY
     Dosage: 2MG, TAKE QUARTER IN EVENING AND HALF AT BEDTIME
  9. XANAX [Concomitant]
     Active Substance: ALPRAZOLAM
     Indication: NEURALGIA
  10. LYRICA [Suspect]
     Active Substance: PREGABALIN
     Dosage: 250 MG, DAILY
  11. XANAX [Concomitant]
     Active Substance: ALPRAZOLAM
     Indication: MUSCLE DISORDER

REACTIONS (4)
  - Feeling abnormal [Unknown]
  - Dysstasia [Unknown]
  - Dyskinesia [Not Recovered/Not Resolved]
  - Somnolence [Unknown]

NARRATIVE: CASE EVENT DATE: 20160805
